FAERS Safety Report 26048766 (Version 2)
Quarter: 2025Q4

REPORT INFORMATION
  Report Type: Report from Study
  Country: US (occurrence: US)
  Receive Date: 20251115
  Receipt Date: 20251224
  Transmission Date: 20260118
  Serious: Yes (Hospitalization, Other)
  Sender: ABBVIE
  Company Number: US-ABBVIE-6544427

PATIENT
  Age: 67 Year
  Sex: Female

DRUGS (1)
  1. QULIPTA [Suspect]
     Active Substance: ATOGEPANT
     Indication: Migraine
     Dosage: LAST ADMIN DATE - 2025
     Route: 048
     Dates: start: 20250901

REACTIONS (7)
  - Hypertension [Unknown]
  - Spinal operation [Unknown]
  - Knee operation [Unknown]
  - Dyspnoea [Unknown]
  - Insomnia [Unknown]
  - Myocardial infarction [Unknown]
  - Pain [Unknown]

NARRATIVE: CASE EVENT DATE: 20250101
